FAERS Safety Report 6600320-6 (Version None)
Quarter: 2010Q1

REPORT INFORMATION
  Report Type: 
  Country: None (occurrence: None)
  Receive Date: 20100217
  Receipt Date: 20100205
  Transmission Date: 20100710
  Serious: Yes (Other)
  Sender: FDA-Public Use
  Company Number: 2010-0406

PATIENT
  Sex: Male

DRUGS (1)
  1. SOMATULINE AUTOGEL 60MG (LANREOTIDE AUTOGEL) (LANREOTIDE) (LANREOTIDE [Suspect]
     Indication: DRUG USE FOR UNKNOWN INDICATION
     Dosage: 60MG (60 MG, NOT REPORTED)

REACTIONS (3)
  - ANGIOEDEMA [None]
  - DYSPNOEA [None]
  - TACHYCARDIA [None]
